FAERS Safety Report 5732148-3 (Version None)
Quarter: 2008Q2

REPORT INFORMATION
  Report Type: 
  Country: None (occurrence: None)
  Receive Date: 20080508
  Receipt Date: 20080501
  Transmission Date: 20081010
  Serious: Yes (Hospitalization, Other)
  Sender: FDA-Public Use
  Company Number: US-AMGEN-US174331

PATIENT
  Sex: Male

DRUGS (11)
  1. EPOGEN [Suspect]
     Indication: DIALYSIS
     Route: 042
     Dates: start: 20030807, end: 20060406
  2. DOXAZOSIN MESYLATE [Concomitant]
  3. SODIUM BICARBONATE [Concomitant]
  4. CLONIDINE [Concomitant]
  5. LORTAB [Concomitant]
  6. FOLIC ACID [Concomitant]
  7. COREG [Concomitant]
  8. LACTULOSE [Concomitant]
  9. AMBIEN [Concomitant]
  10. NEXIUM [Concomitant]
  11. VANCOMYCIN [Concomitant]

REACTIONS (6)
  - ABSCESS LIMB [None]
  - ANTI-ERYTHROPOIETIN ANTIBODY POSITIVE [None]
  - STAPHYLOCOCCAL BACTERAEMIA [None]
  - STAPHYLOCOCCAL INFECTION [None]
  - THERAPEUTIC RESPONSE DECREASED [None]
  - VERTEBRAL COLUMN MASS [None]
